FAERS Safety Report 9981356 (Version 1)
Quarter: 2014Q1

REPORT INFORMATION
  Report Type: Spontaneous
  Country: US (occurrence: None)
  Receive Date: 20140306
  Receipt Date: 20140306
  Transmission Date: 20141002
  Serious: Yes (Other)
  Sender: FDA-Public Use
  Company Number: None

PATIENT
  Age: 40 Year
  Sex: Female

DRUGS (2)
  1. LEVOFLOXACIN [Suspect]
     Indication: NASOPHARYNGITIS
     Dosage: 1 PILL ONCE DAILY
     Route: 048
     Dates: start: 20140228, end: 20140302
  2. LEVOFLOXACIN [Suspect]
     Indication: INFLUENZA
     Dosage: 1 PILL ONCE DAILY
     Route: 048
     Dates: start: 20140228, end: 20140302

REACTIONS (8)
  - Arthralgia [None]
  - Paraesthesia [None]
  - Arthralgia [None]
  - Musculoskeletal stiffness [None]
  - Arthralgia [None]
  - Back pain [None]
  - Arthralgia [None]
  - Arthralgia [None]
